FAERS Safety Report 17492288 (Version 1)
Quarter: 2020Q1

REPORT INFORMATION
  Report Type: Spontaneous
  Country: US (occurrence: US)
  Receive Date: 20200303
  Receipt Date: 20200303
  Transmission Date: 20200409
  Serious: Yes (Hospitalization)
  Sender: FDA-Public Use
  Company Number: US-AKRON, INC.-2081231

PATIENT
  Age: 55 Year
  Sex: Female

DRUGS (1)
  1. FAMOTIDINE FOR ORAL SUSPENSION USP [Suspect]
     Active Substance: FAMOTIDINE
     Indication: GASTROOESOPHAGEAL REFLUX DISEASE
     Route: 048

REACTIONS (1)
  - Hypomagnesaemia [Recovered/Resolved]
